FAERS Safety Report 7296851-9 (Version None)
Quarter: 2011Q1

REPORT INFORMATION
  Report Type: 
  Country: None (occurrence: None)
  Receive Date: 20110216
  Receipt Date: 20110207
  Transmission Date: 20110831
  Serious: Yes (Other)
  Sender: FDA-Public Use
  Company Number: GB-JNJFOC-20110202056

PATIENT
  Age: 37 Year
  Sex: Female

DRUGS (5)
  1. PARACETAMOL [Suspect]
     Indication: SYMPHYSIOLYSIS
     Route: 048
  2. CO-CODAMOL [Suspect]
     Indication: SYMPHYSIOLYSIS
     Route: 048
  3. PARACETAMOL [Suspect]
     Route: 048
  4. MORPHINE SULFATE [Suspect]
     Indication: SYMPHYSIOLYSIS
  5. BUTRANS [Suspect]
     Indication: SYMPHYSIOLYSIS
     Route: 062

REACTIONS (2)
  - INTRA-UTERINE DEATH [None]
  - DRUG EXPOSURE DURING PREGNANCY [None]
